FAERS Safety Report 15662741 (Version 4)
Quarter: 2019Q2

REPORT INFORMATION
  Report Type: Spontaneous
  Country: US (occurrence: US)
  Receive Date: 20181127
  Receipt Date: 20190401
  Transmission Date: 20190711
  Serious: Yes (Other)
  Sender: FDA-Public Use
  Company Number: US-SAKK-2018SA170247AA

PATIENT
  Sex: Female

DRUGS (1)
  1. DUPIXENT [Suspect]
     Active Substance: DUPILUMAB
     Indication: DERMATITIS ATOPIC
     Dosage: 300 MG, QOW
     Route: 058
     Dates: start: 20180411

REACTIONS (9)
  - Injection site reaction [Unknown]
  - Discharge [Unknown]
  - Pruritus [Unknown]
  - Swelling of eyelid [Unknown]
  - Cheilitis [Unknown]
  - Ocular hyperaemia [Unknown]
  - Erythema of eyelid [Unknown]
  - Eye inflammation [Unknown]
  - Lip erythema [Unknown]
